FAERS Safety Report 18495049 (Version 1)
Quarter: 2020Q4

REPORT INFORMATION
  Report Type: Spontaneous
  Country: US (occurrence: US)
  Receive Date: 20201111
  Receipt Date: 20201111
  Transmission Date: 20210114
  Serious: No
  Sender: FDA-Public Use
  Company Number: None

PATIENT
  Age: 85 Year
  Sex: Male

DRUGS (1)
  1. METOPROLOL *TARTRATE* TA TABS 25. [Suspect]
     Active Substance: METOPROLOL TARTRATE
     Route: 048
     Dates: start: 202008

REACTIONS (4)
  - Blood pressure diastolic decreased [None]
  - Lethargy [None]
  - Hypotension [None]
  - Decreased appetite [None]

NARRATIVE: CASE EVENT DATE: 20201101
